FAERS Safety Report 9143846 (Version 2)
Quarter: 2013Q2

REPORT INFORMATION
  Report Type: Spontaneous
  Country: CA (occurrence: CA)
  Receive Date: 20130306
  Receipt Date: 20130412
  Transmission Date: 20140414
  Serious: Yes (Hospitalization)
  Sender: FDA-Public Use
  Company Number: CA-PURDUE-CAN-2013-0003826

PATIENT
  Sex: Male

DRUGS (5)
  1. HYDROMORPH CONTIN 12 MG [Suspect]
     Indication: PAIN
     Dosage: 2 CAPSL, TID
     Route: 048
  2. DILAUDID [Concomitant]
     Indication: PAIN
     Dosage: 8 MG, Q3H PRN
     Route: 042
  3. IMOVANE [Concomitant]
     Indication: PRODUCT USED FOR UNKNOWN INDICATION
     Dosage: 7.5 MG, SEE TEXT
     Route: 048
  4. GRAVOL [Concomitant]
     Indication: PRODUCT USED FOR UNKNOWN INDICATION
     Dosage: 50 MG, Q4H PRN
     Route: 048
  5. GRAVOL [Concomitant]
     Dosage: 50 MG, Q4H PRN
     Route: 042

REACTIONS (4)
  - Hospitalisation [Unknown]
  - Drug ineffective [Unknown]
  - Drug diversion [Unknown]
  - Product taste abnormal [None]
